FAERS Safety Report 15571635 (Version 1)
Quarter: 2018Q4

REPORT INFORMATION
  Report Type: Report from Study
  Country: FR (occurrence: FR)
  Receive Date: 20181031
  Receipt Date: 20181031
  Transmission Date: 20190205
  Serious: Yes (Hospitalization, Other)
  Sender: FDA-Public Use
  Company Number: FR-MYLANLABS-2018M1081205

PATIENT
  Age: 67 Year
  Sex: Male
  Weight: 73 kg

DRUGS (2)
  1. BRENTUXIMAB VEDOTIN [Suspect]
     Active Substance: BRENTUXIMAB VEDOTIN
     Indication: HODGKIN^S DISEASE
     Dosage: 130 MG, UNK
     Route: 042
  2. BENDAMUSTINE HYDROCHLORIDE. [Suspect]
     Active Substance: BENDAMUSTINE HYDROCHLORIDE
     Indication: HODGKIN^S DISEASE
     Dosage: 167.5 MG, UNK
     Route: 042

REACTIONS (18)
  - Gouty arthritis [Recovered/Resolved]
  - Urticaria [Not Recovered/Not Resolved]
  - Crystal arthropathy [Recovered/Resolved]
  - Steroid diabetes [Recovered/Resolved]
  - Pyrexia [Not Recovered/Not Resolved]
  - Malnutrition [Recovered/Resolved]
  - Oral candidiasis [Not Recovered/Not Resolved]
  - Adverse event [Unknown]
  - Decreased appetite [Not Recovered/Not Resolved]
  - Duodenal ulcer haemorrhage [Recovered/Resolved]
  - Fatigue [Unknown]
  - Anaemia [Recovered/Resolved]
  - Weight decreased [Unknown]
  - Off label use [Unknown]
  - Infection [Recovered/Resolved]
  - Chills [Not Recovered/Not Resolved]
  - Asthenia [Not Recovered/Not Resolved]
  - Rash [Unknown]

NARRATIVE: CASE EVENT DATE: 20170928
